FAERS Safety Report 23236631 (Version 1)
Quarter: 2023Q4

REPORT INFORMATION
  Report Type: Spontaneous
  Country: US (occurrence: None)
  Receive Date: 20231127
  Receipt Date: 20231127
  Transmission Date: 20240110
  Serious: No
  Sender: FDA-Public Use
  Company Number: None

PATIENT
  Age: 72 Year
  Sex: Female
  Weight: 92.99 kg

DRUGS (2)
  1. ACTEMRA ACTPEN [Suspect]
     Active Substance: TOCILIZUMAB
     Indication: Rheumatoid arthritis
     Dosage: OTHER FREQUENCY : EVERY 2 WEEKS;?
     Route: 058
  2. ACTEMRA ACTPEN [Suspect]
     Active Substance: TOCILIZUMAB
     Indication: Arthritis

REACTIONS (1)
  - Nasopharyngitis [None]
